FAERS Safety Report 4382429-3 (Version None)
Quarter: 2004Q2

REPORT INFORMATION
  Report Type: 
  Country: None (occurrence: None)
  Receive Date: 20040621
  Receipt Date: 20040607
  Transmission Date: 20050107
  Serious: Yes (Life-Threatening, Hospitalization)
  Sender: FDA-Public Use
  Company Number: A-US2004-06530

PATIENT
  Age: 6 Year
  Sex: Male

DRUGS (6)
  1. TRACLEER [Suspect]
     Indication: PULMONARY HYPERTENSION
     Dosage: 31.25 MG, BID, ORAL
     Route: 048
     Dates: start: 20020801
  2. PROTAMINE SULFATE [Suspect]
  3. DIGOXIN [Concomitant]
  4. LASIX [Concomitant]
  5. FLOLAN [Concomitant]
  6. HEPARIN [Concomitant]

REACTIONS (11)
  - ACTIVATED PARTIAL THROMBOPLASTIN TIME PROLONGED [None]
  - AIR EMBOLISM [None]
  - ANAPHYLACTIC SHOCK [None]
  - BLOOD FIBRINOGEN DECREASED [None]
  - BRADYCARDIA [None]
  - CARDIAC ARREST [None]
  - DRUG INTERACTION [None]
  - LOW CARDIAC OUTPUT SYNDROME [None]
  - OPERATIVE HAEMORRHAGE [None]
  - PROTHROMBIN TIME PROLONGED [None]
  - VENTRICULAR HYPOKINESIA [None]
